FAERS Safety Report 22244053 (Version 1)
Quarter: 2023Q2

REPORT INFORMATION
  Report Type: Other
  Country: PK (occurrence: None)
  Receive Date: 20230424
  Receipt Date: 20230424
  Transmission Date: 20230722
  Serious: Yes (Death)
  Sender: FDA-Public Use
  Company Number: PK-ROCHE-3313753

PATIENT
  Age: 64 Year
  Sex: Female

DRUGS (1)
  1. HERCEPTIN [Suspect]
     Active Substance: TRASTUZUMAB
     Indication: Gastric cancer
     Dosage: SOLUTION FORM
     Route: 041
     Dates: start: 20221013, end: 20221119

REACTIONS (1)
  - Neoplasm malignant [Fatal]
